FAERS Safety Report 7479404-9 (Version None)
Quarter: 2011Q2

REPORT INFORMATION
  Report Type: 
  Country: None (occurrence: None)
  Receive Date: 20110513
  Receipt Date: 20110510
  Transmission Date: 20111010
  Serious: Yes (Other)
  Sender: FDA-Public Use
  Company Number: US-PFIZER INC-2011088409

PATIENT
  Sex: Female

DRUGS (5)
  1. KLONOPIN [Concomitant]
  2. LUNESTA [Concomitant]
     Dosage: UNK
  3. RISPERDAL [Concomitant]
  4. GEODON [Suspect]
     Indication: SCHIZOAFFECTIVE DISORDER
     Dosage: 20 MG, 1X/DAY
     Route: 048
  5. AMITRIPTYLINE [Concomitant]

REACTIONS (1)
  - GLYCOSYLATED HAEMOGLOBIN INCREASED [None]
